FAERS Safety Report 6252604-1 (Version None)
Quarter: 2009Q3

REPORT INFORMATION
  Report Type: 
  Country: None (occurrence: None)
  Receive Date: 20090701
  Receipt Date: 20090623
  Transmission Date: 20100115
  Serious: Yes (Other)
  Sender: FDA-Public Use
  Company Number: CH-ROCHE-627853

PATIENT
  Age: 73 Year
  Sex: Male
  Weight: 73.5 kg

DRUGS (4)
  1. CAPECITABINE [Suspect]
     Indication: COLON CANCER
     Route: 048
     Dates: start: 20081218
  2. CAPECITABINE [Suspect]
     Dosage: DOSE INCREASED.
     Route: 048
     Dates: start: 20090219, end: 20090228
  3. ANALGESIC NOS [Concomitant]
     Dosage: NAME REPORTED AS MEDICATION AGAINST PAIN
  4. OXALIPLATIN [Concomitant]
     Indication: COLON CANCER
     Dates: end: 20090219

REACTIONS (4)
  - DYSPNOEA [None]
  - GAIT DISTURBANCE [None]
  - PALMAR-PLANTAR ERYTHRODYSAESTHESIA SYNDROME [None]
  - PARAESTHESIA [None]
